FAERS Safety Report 8832242 (Version 2)
Quarter: 2013Q2

REPORT INFORMATION
  Report Type: Report from Study
  Country: MX (occurrence: MX)
  Receive Date: 20121009
  Receipt Date: 20130422
  Transmission Date: 20140414
  Serious: Yes (Death, Other)
  Sender: FDA-Public Use
  Company Number: PHHY2012MX025340

PATIENT
  Sex: Male

DRUGS (5)
  1. RASILEZ HCT [Suspect]
     Indication: HYPERTENSION
     Dosage: 1 DF (300/12.5 MG), PER DAY
     Dates: start: 201109
  2. AMLODIPINE [Concomitant]
     Indication: HYPERTENSION
     Dosage: 2 DF, PER DAY
     Dates: start: 201103
  3. METOPROLOL [Concomitant]
     Indication: HYPERTENSION
     Dosage: 1 DF, PER DAY
     Dates: start: 201103
  4. PENTOXIFYLLINE [Concomitant]
     Indication: CARDIOVASCULAR DISORDER
     Dosage: 1 DF, DAILY
  5. ALLOPURINOL [Concomitant]
     Indication: BLOOD URIC ACID ABNORMAL
     Dosage: 1 DF, PER DAY

REACTIONS (8)
  - Renal failure [Fatal]
  - Infarction [Unknown]
  - Cardio-respiratory arrest [Unknown]
  - Anaemia [Unknown]
  - Hypersomnia [Unknown]
  - Dyspnoea [Unknown]
  - Fatigue [Unknown]
  - Blood pressure inadequately controlled [Unknown]
